FAERS Safety Report 6396856-6 (Version None)
Quarter: 2009Q4

REPORT INFORMATION
  Report Type: 
  Country: None (occurrence: None)
  Receive Date: 20091012
  Receipt Date: 20090622
  Transmission Date: 20100525
  Serious: No
  Sender: FDA-Public Use
  Company Number: US-ASTRAZENECA-2009UW16763

PATIENT
  Sex: Female

DRUGS (2)
  1. SYMBICORT [Suspect]
     Route: 055
  2. SINGULAIR [Concomitant]

REACTIONS (6)
  - ARTHRITIS [None]
  - INSOMNIA [None]
  - MYALGIA [None]
  - SWELLING [None]
  - WEIGHT INCREASED [None]
  - WEIGHT LOSS POOR [None]
